FAERS Safety Report 4744266-7 (Version None)
Quarter: 2005Q3

REPORT INFORMATION
  Report Type: 
  Country: None (occurrence: None)
  Receive Date: 20050809
  Receipt Date: 20050725
  Transmission Date: 20060218
  Serious: Yes (Life-Threatening, Hospitalization)
  Sender: FDA-Public Use
  Company Number: 8009529

PATIENT
  Age: 34 Year
  Sex: Female
  Weight: 72.4 kg

DRUGS (11)
  1. KEPPRA [Suspect]
     Indication: GRAND MAL CONVULSION
     Dosage: 500 MG 2/D PO
     Route: 048
     Dates: start: 20041207, end: 20050315
  2. DEPAKENE [Concomitant]
  3. DEPAKENE [Concomitant]
  4. DEPAKENE [Concomitant]
  5. DEPAKENE [Concomitant]
  6. DEPAKENE [Concomitant]
  7. DEPAKENE [Concomitant]
  8. DEPAKENE [Concomitant]
  9. LUTENYL [Concomitant]
  10. DOLIPRANE [Concomitant]
  11. ASPIRIN [Concomitant]

REACTIONS (36)
  - AGGRESSION [None]
  - ANTICONVULSANT DRUG LEVEL BELOW THERAPEUTIC [None]
  - C-REACTIVE PROTEIN INCREASED [None]
  - CEREBELLAR HAEMORRHAGE [None]
  - CEREBRAL ISCHAEMIA [None]
  - COGNITIVE DISORDER [None]
  - CONDITION AGGRAVATED [None]
  - CONVULSION [None]
  - CYTOLYTIC HEPATITIS [None]
  - DELIRIUM [None]
  - DIARRHOEA [None]
  - DRUG INEFFECTIVE [None]
  - DRUG INTOLERANCE [None]
  - ENDOMETRIOSIS [None]
  - FALL [None]
  - FEELING ABNORMAL [None]
  - HEADACHE [None]
  - HEMIPLEGIA [None]
  - IMPATIENCE [None]
  - INSOMNIA [None]
  - LOSS OF CONSCIOUSNESS [None]
  - MENTAL DISORDER [None]
  - MOTOR DYSFUNCTION [None]
  - NECROSIS [None]
  - PELVIC FRACTURE [None]
  - PROTEIN TOTAL DECREASED [None]
  - RENAL FAILURE [None]
  - RESTLESSNESS [None]
  - RHABDOMYOLYSIS [None]
  - SOMNOLENCE [None]
  - SPEECH DISORDER [None]
  - STATUS EPILEPTICUS [None]
  - THROMBOCYTOPENIA [None]
  - THROMBOPHLEBITIS [None]
  - TRAUMATIC FRACTURE [None]
  - WHITE BLOOD CELL COUNT INCREASED [None]
